FAERS Safety Report 8409521-8 (Version None)
Quarter: 2012Q2

REPORT INFORMATION
  Report Type: 
  Country: None (occurrence: None)
  Receive Date: 20120529
  Receipt Date: 20070928
  Transmission Date: 20120825
  Serious: Yes (Other)
  Sender: FDA-Public Use
  Company Number: JP-2012-10181

PATIENT
  Age: 24 Year
  Sex: Female

DRUGS (3)
  1. ASPIRIN [Concomitant]
  2. PLETAL [Suspect]
     Indication: CEREBRAL INFARCTION
     Dosage: 50;100 MG, BID, ORAL
     Route: 048
     Dates: start: 20051227, end: 20060109
  3. PLETAL [Suspect]
     Indication: CEREBRAL INFARCTION
     Dosage: 50;100 MG, BID, ORAL
     Route: 048
     Dates: start: 20060110

REACTIONS (1)
  - CONVULSION [None]
